FAERS Safety Report 4668411-7 (Version None)
Quarter: 2005Q2

REPORT INFORMATION
  Report Type: 
  Country: None (occurrence: None)
  Receive Date: 20050523
  Receipt Date: 20050517
  Transmission Date: 20051028
  Serious: Yes (Death)
  Sender: FDA-Public Use
  Company Number: PHBS2005AT06987

PATIENT
  Age: 66 Year
  Sex: Female

DRUGS (6)
  1. CYCLOSPORINE [Suspect]
     Indication: LIVER TRANSPLANT
     Route: 065
  2. FLUVASTATIN [Concomitant]
  3. URSODEOXYCHOLIC ACID [Concomitant]
  4. ALENDRONATE SODIUM [Concomitant]
  5. CARVEDILOL [Concomitant]
  6. AMLODIPINE [Concomitant]

REACTIONS (23)
  - ATRIAL FIBRILLATION [None]
  - BLOOD CREATINE PHOSPHOKINASE INCREASED [None]
  - BLOOD LACTATE DEHYDROGENASE INCREASED [None]
  - CARDIOGENIC SHOCK [None]
  - CARDIOMEGALY [None]
  - CHEST X-RAY ABNORMAL [None]
  - DILATATION VENTRICULAR [None]
  - DIZZINESS POSTURAL [None]
  - DYSPNOEA EXERTIONAL [None]
  - EJECTION FRACTION DECREASED [None]
  - ELECTROMECHANICAL DISSOCIATION [None]
  - ERYTHEMA INFECTIOSUM [None]
  - FATIGUE [None]
  - HYPOTENSION [None]
  - LOW CARDIAC OUTPUT SYNDROME [None]
  - MYOCARDITIS [None]
  - NORMOCHROMIC NORMOCYTIC ANAEMIA [None]
  - PERICARDIAL EFFUSION [None]
  - PLEURAL EFFUSION [None]
  - PNEUMONIA STAPHYLOCOCCAL [None]
  - PULMONARY CONGESTION [None]
  - RENAL IMPAIRMENT [None]
  - TROPONIN I INCREASED [None]
